FAERS Safety Report 7060982-9 (Version None)
Quarter: 2010Q4

REPORT INFORMATION
  Report Type: 
  Country: None (occurrence: None)
  Receive Date: 20101026
  Receipt Date: 20101015
  Transmission Date: 20110411
  Serious: No
  Sender: FDA-Public Use
  Company Number: US-JNJFOC-20101004731

PATIENT
  Sex: Female
  Weight: 70.31 kg

DRUGS (18)
  1. FENTANYL CITRATE [Suspect]
     Indication: PAIN IN EXTREMITY
     Route: 062
  2. FENTANYL CITRATE [Suspect]
     Dosage: NDC#: 0781-7241-55
     Route: 062
  3. FENTANYL CITRATE [Suspect]
     Indication: MUSCULOSKELETAL PAIN
     Route: 062
  4. FENTANYL CITRATE [Suspect]
     Dosage: NDC#: 0781-7241-55
     Route: 062
  5. FENTANYL CITRATE [Suspect]
     Indication: SPINAL DISORDER
     Route: 062
  6. FENTANYL CITRATE [Suspect]
     Dosage: NDC#: 0781-7241-55
     Route: 062
  7. FENTANYL CITRATE [Suspect]
     Indication: SCIATICA
     Route: 062
  8. FENTANYL CITRATE [Suspect]
     Dosage: NDC#: 0781-7241-55
     Route: 062
  9. LISINOPRIL [Concomitant]
     Indication: BLOOD PRESSURE
     Route: 048
  10. PERCOCET [Concomitant]
     Indication: BREAKTHROUGH PAIN
     Dosage: 5MG/325MG/2 TABLETS EVERY 6 HOURS AS NEEDED.
     Route: 048
  11. AMLODIPINE [Concomitant]
     Indication: BLOOD PRESSURE
     Route: 048
  12. LIPITOR [Concomitant]
     Indication: BLOOD CHOLESTEROL
     Route: 048
  13. CYMBALTA [Concomitant]
     Indication: RELAXATION THERAPY
     Route: 048
  14. CALCIUM [Concomitant]
     Indication: MINERAL SUPPLEMENTATION
     Route: 048
  15. CENTRUM MULTIVITAMINS [Concomitant]
     Indication: MINERAL SUPPLEMENTATION
     Route: 048
  16. MIRALAX [Concomitant]
     Indication: CONSTIPATION
     Route: 048
  17. MIACALCIN [Concomitant]
     Indication: BONE DISORDER
     Route: 045
  18. OXYCODONE [Concomitant]
     Indication: BREAKTHROUGH PAIN
     Dosage: 5/325/TABLET AS NEEDED
     Route: 048

REACTIONS (6)
  - DRUG DOSE OMISSION [None]
  - DRUG INEFFECTIVE [None]
  - INAPPROPRIATE SCHEDULE OF DRUG ADMINISTRATION [None]
  - PRODUCT QUALITY ISSUE [None]
  - TREATMENT NONCOMPLIANCE [None]
  - WRONG TECHNIQUE IN DRUG USAGE PROCESS [None]
